FAERS Safety Report 11773821 (Version 2)
Quarter: 2016Q1

REPORT INFORMATION
  Report Type: Report from Study
  Country: NL (occurrence: NL)
  Receive Date: 20151124
  Receipt Date: 20160113
  Transmission Date: 20160525
  Serious: Yes (Other)
  Sender: FDA-Public Use
  Company Number: NL-AMGEN-NLDSL2015122400

PATIENT
  Age: 72 Year
  Sex: Male

DRUGS (4)
  1. XOFIGO [Suspect]
     Active Substance: RADIUM RA-223 DICHLORIDE
     Indication: PRODUCT USED FOR UNKNOWN INDICATION
     Dosage: UNK
     Route: 065
  2. XGEVA [Suspect]
     Active Substance: DENOSUMAB
     Indication: PRODUCT USED FOR UNKNOWN INDICATION
     Dosage: 1.7 ML (120 MG), Q4WK
     Route: 058
     Dates: start: 20120917
  3. TAXOTERE [Concomitant]
     Active Substance: DOCETAXEL
     Dosage: UNK
  4. RADIUM [Concomitant]
     Active Substance: RADIUM
     Dosage: 223, UNK
     Dates: start: 20150304

REACTIONS (21)
  - Pelvic pain [Unknown]
  - Anal abscess [Unknown]
  - Diplopia [Unknown]
  - Hypophosphataemia [Unknown]
  - Malaise [Unknown]
  - Neutropenia [Unknown]
  - Hepatic steatosis [Unknown]
  - Fatigue [Unknown]
  - Back pain [Unknown]
  - Pulmonary embolism [Unknown]
  - Hypocalcaemia [Unknown]
  - Pancytopenia [Unknown]
  - Decreased appetite [Unknown]
  - Prostate cancer [Unknown]
  - Gastroenteritis viral [Unknown]
  - Diarrhoea [Unknown]
  - Pneumonia [Unknown]
  - Nausea [Unknown]
  - Pain in extremity [Unknown]
  - Candida infection [Unknown]
  - Constipation [Unknown]

NARRATIVE: CASE EVENT DATE: 20121119
